FAERS Safety Report 24223470 (Version 1)
Quarter: 2024Q3

REPORT INFORMATION
  Report Type: Spontaneous
  Country: US (occurrence: US)
  Receive Date: 20240819
  Receipt Date: 20240819
  Transmission Date: 20241016
  Serious: No
  Sender: PFIZER
  Company Number: US-PFIZER INC-202400237004

PATIENT
  Age: 78 Year
  Sex: Female
  Weight: 51.71 kg

DRUGS (1)
  1. IBRANCE [Suspect]
     Active Substance: PALBOCICLIB
     Indication: Neoplasm malignant
     Dosage: 125 MG, 1X/DAY (EVERY MORNING AT 9 O^CLOCK)
     Route: 048
     Dates: start: 20240620, end: 20240711

REACTIONS (3)
  - Diarrhoea [Unknown]
  - Nausea [Unknown]
  - Asthenia [Unknown]
